FAERS Safety Report 6823893-7 (Version None)
Quarter: 2010Q3

REPORT INFORMATION
  Report Type: 
  Country: None (occurrence: None)
  Receive Date: 20100708
  Receipt Date: 20060919
  Transmission Date: 20110219
  Serious: Yes (Other)
  Sender: FDA-Public Use
  Company Number: US-PFIZER INC-2006113920

PATIENT
  Sex: Male
  Weight: 75.75 kg

DRUGS (1)
  1. CHANTIX [Suspect]
     Indication: SMOKING CESSATION THERAPY
     Dates: start: 20060801

REACTIONS (4)
  - CHEST PAIN [None]
  - COUGH [None]
  - MALAISE [None]
  - TOBACCO USER [None]
